FAERS Safety Report 15753602 (Version 1)
Quarter: 2018Q4

REPORT INFORMATION
  Report Type: Report from Study
  Country: BR (occurrence: BR)
  Receive Date: 20181222
  Receipt Date: 20181222
  Transmission Date: 20190205
  Serious: Yes (Death, Other)
  Sender: FDA-Public Use
  Company Number: BR-BAYER-2017-208866

PATIENT
  Age: 67 Year
  Sex: Male

DRUGS (4)
  1. ATENOLOL. [Concomitant]
     Active Substance: ATENOLOL
     Indication: HYPERTENSION
     Dosage: UNK
     Dates: end: 201811
  2. CLORANA [Concomitant]
     Active Substance: HYDROCHLOROTHIAZIDE
     Indication: HYPERTENSION
     Dosage: UNK
     Dates: end: 201811
  3. NEXAVAR [Suspect]
     Active Substance: SORAFENIB
     Indication: METASTASES TO LIVER
  4. NEXAVAR [Suspect]
     Active Substance: SORAFENIB
     Indication: THYROID CANCER
     Dosage: 4 DF, QD
     Route: 048
     Dates: start: 20171010, end: 201811

REACTIONS (11)
  - Systemic infection [Fatal]
  - Pain of skin [Not Recovered/Not Resolved]
  - Headache [None]
  - Multiple organ dysfunction syndrome [Fatal]
  - Gait disturbance [Recovering/Resolving]
  - Blood pressure increased [None]
  - Pain of skin [Recovering/Resolving]
  - Dry skin [Recovering/Resolving]
  - Drug ineffective [None]
  - Thyroid cancer metastatic [Fatal]
  - Peripheral swelling [Recovering/Resolving]

NARRATIVE: CASE EVENT DATE: 201710
